FAERS Safety Report 7820225-2 (Version None)
Quarter: 2011Q4

REPORT INFORMATION
  Report Type: 
  Country: None (occurrence: None)
  Receive Date: 20111018
  Receipt Date: 20111004
  Transmission Date: 20120403
  Serious: Yes (Hospitalization, Other)
  Sender: FDA-Public Use
  Company Number: CA-ELI_LILLY_AND_COMPANY-CA201110000628

PATIENT
  Sex: Female

DRUGS (4)
  1. ZYPREXA [Suspect]
     Dosage: 10 MG, QD
  2. ZYPREXA [Suspect]
     Dosage: 5 MG, QD
  3. ZYPREXA [Suspect]
     Dosage: 2.5 MG, QD
  4. ELAVIL [Concomitant]

REACTIONS (15)
  - MYOCARDIAL INFARCTION [None]
  - PANCREATITIS CHRONIC [None]
  - LIVER FUNCTION TEST ABNORMAL [None]
  - WEIGHT INCREASED [None]
  - BLOOD GLUCOSE INCREASED [None]
  - RECTAL HAEMORRHAGE [None]
  - PAIN [None]
  - CEREBROVASCULAR ACCIDENT [None]
  - MUSCLE SPASMS [None]
  - SYNCOPE [None]
  - PEPTIC ULCER [None]
  - NON-CARDIAC CHEST PAIN [None]
  - BLOOD TRIGLYCERIDES INCREASED [None]
  - HYPERCHOLESTEROLAEMIA [None]
  - RENAL IMPAIRMENT [None]
